FAERS Safety Report 10401835 (Version 1)
Quarter: 2014Q1

REPORT INFORMATION
  Report Type: Spontaneous
  Country: US (occurrence: None)
  Receive Date: 20130815
  Receipt Date: 20130815
  Transmission Date: 20141002
  Serious: Yes (Other)
  Sender: FDA-Public Use
  Company Number: ADR-2012-01889

PATIENT
  Sex: Male

DRUGS (1)
  1. LIORESAL INTRATHECAL (BACLOFEN INJECTION) 2000 MCG/ML [Suspect]
     Indication: MUSCLE SPASTICITY

REACTIONS (9)
  - Bradycardia [None]
  - Hyperhidrosis [None]
  - Drug withdrawal syndrome [None]
  - Flushing [None]
  - Overdose [None]
  - Tachycardia [None]
  - Therapeutic response decreased [None]
  - Unresponsive to stimuli [None]
  - Muscle spasms [None]
